FAERS Safety Report 15060457 (Version 2)
Quarter: 2018Q2

REPORT INFORMATION
  Report Type: Report from Study
  Country: US (occurrence: US)
  Receive Date: 20180625
  Receipt Date: 20180629
  Transmission Date: 20180711
  Serious: Yes (Other)
  Sender: FDA-Public Use
  Company Number: PHHO2018US007651

PATIENT

DRUGS (2)
  1. KISQALI FEMARA CO-PACK [Suspect]
     Active Substance: LETROZOLE\RIBOCICLIB
     Indication: GLIOMA
     Route: 048
  2. KISQALI FEMARA CO-PACK [Suspect]
     Active Substance: LETROZOLE\RIBOCICLIB
     Indication: MENINGIOMA

REACTIONS (1)
  - Acute kidney injury [Recovering/Resolving]

NARRATIVE: CASE EVENT DATE: 20180616
